FAERS Safety Report 16951529 (Version 1)
Quarter: 2019Q4

REPORT INFORMATION
  Report Type: Spontaneous
  Country: US (occurrence: US)
  Receive Date: 20191022
  Receipt Date: 20191022
  Transmission Date: 20200122
  Serious: Yes (Life-Threatening, Hospitalization)
  Sender: FDA-Public Use
  Company Number: None

PATIENT
  Age: 68 Year
  Sex: Male
  Weight: 105.6 kg

DRUGS (1)
  1. METFORMIN [Suspect]
     Active Substance: METFORMIN HYDROCHLORIDE
     Dosage: 1500 MG ORAL 1500 AM, 1000 PM
     Route: 048

REACTIONS (4)
  - Dialysis [None]
  - Lactic acidosis [None]
  - Chronic kidney disease [None]
  - Diarrhoea [None]

NARRATIVE: CASE EVENT DATE: 20191017
